FAERS Safety Report 6502057-0 (Version None)
Quarter: 2009Q4

REPORT INFORMATION
  Report Type: 
  Country: None (occurrence: None)
  Receive Date: 20091216
  Receipt Date: 20091207
  Transmission Date: 20100525
  Serious: Yes (Hospitalization, Other)
  Sender: FDA-Public Use
  Company Number: US-MERCK-0908USA01685

PATIENT
  Age: 58 Year
  Sex: Female

DRUGS (3)
  1. FOSAMAX [Suspect]
     Indication: OSTEOPOROSIS
     Route: 048
     Dates: start: 19990701, end: 20060801
  2. FOSAMAX [Suspect]
     Indication: CALCIUM DEFICIENCY
     Route: 048
     Dates: start: 19990701, end: 20060801
  3. SYNTHROID [Concomitant]
     Indication: HYPOTHYROIDISM
     Route: 065

REACTIONS (5)
  - IRON DEFICIENCY [None]
  - JAW FRACTURE [None]
  - JOINT DISLOCATION [None]
  - OSTEOMYELITIS [None]
  - OSTEONECROSIS [None]
